FAERS Safety Report 15722788 (Version 1)
Quarter: 2018Q4

REPORT INFORMATION
  Report Type: Spontaneous
  Country: US (occurrence: US)
  Receive Date: 20181214
  Receipt Date: 20181214
  Transmission Date: 20190205
  Serious: Yes (Other)
  Sender: FDA-Public Use
  Company Number: None

PATIENT
  Age: 83 Year
  Sex: Female
  Weight: 64.35 kg

DRUGS (12)
  1. VITAMIN K2 [Concomitant]
     Active Substance: MENAQUINONE 6
  2. CALCIUM WITH VITAMIN D [Concomitant]
     Active Substance: CALCIUM\VITAMIN D
  3. SERTRALINE [Concomitant]
     Active Substance: SERTRALINE HYDROCHLORIDE
  4. MIRTAZAPINE. [Concomitant]
     Active Substance: MIRTAZAPINE
  5. ASPIRIN ENTERIC COATED [Concomitant]
     Active Substance: ASPIRIN
  6. DONEPEZIL. [Concomitant]
     Active Substance: DONEPEZIL
  7. GABAPENTIN. [Concomitant]
     Active Substance: GABAPENTIN
  8. NINLARO [Suspect]
     Active Substance: IXAZOMIB CITRATE
     Indication: PLASMA CELL MYELOMA
     Dosage: ?          OTHER FREQUENCY:3 DAYS PER 28-DAY;?
     Route: 048
     Dates: start: 20180911
  9. LEVOTHYROXINE. [Concomitant]
     Active Substance: LEVOTHYROXINE
  10. VITAMIN B COMPLEX [Concomitant]
     Active Substance: CYANOCOBALAMIN\DEXPANTHENOL\NIACINAMIDE\PYRIDOXINE HYDROCHLORIDE\RIBOFLAVIN 5^-PHOSPHATE SODIUM\THIAMINE HYDROCHLORIDE\VITAMIN B COMPLEX
  11. VITAMIN D [Concomitant]
     Active Substance: CHOLECALCIFEROL
  12. PANTOPRAZOLE [Concomitant]
     Active Substance: PANTOPRAZOLE

REACTIONS (2)
  - Fatigue [None]
  - Thrombocytopenia [None]

NARRATIVE: CASE EVENT DATE: 20181214
